FAERS Safety Report 15569974 (Version 1)
Quarter: 2018Q4

REPORT INFORMATION
  Report Type: Other
  Country: ES (occurrence: ES)
  Receive Date: 20181031
  Receipt Date: 20181031
  Transmission Date: 20190205
  Serious: No
  Sender: FDA-Public Use
  Company Number: ES-LUPIN PHARMACEUTICALS INC.-2018-05500

PATIENT
  Age: 34 Year
  Sex: Female
  Weight: 80 kg

DRUGS (1)
  1. DESOGESTREL AND ETHINYL ESTRADIOL [Suspect]
     Active Substance: DESOGESTREL\ETHINYL ESTRADIOL
     Indication: POLYMENORRHOEA
     Dosage: 150 MCG, QD
     Route: 048
     Dates: start: 20170515

REACTIONS (1)
  - Vitamin B12 decreased [Unknown]

NARRATIVE: CASE EVENT DATE: 2017
